FAERS Safety Report 13115011 (Version 2)
Quarter: 2017Q1

REPORT INFORMATION
  Report Type: Spontaneous
  Country: US (occurrence: US)
  Receive Date: 20170113
  Receipt Date: 20170118
  Transmission Date: 20170428
  Serious: Yes (Hospitalization)
  Sender: FDA-Public Use
  Company Number: US-RELYPSA-RLY2017000047

PATIENT
  Age: 84 Year
  Sex: Male

DRUGS (12)
  1. CALCITRIOL. [Concomitant]
     Active Substance: CALCITRIOL
  2. CARDURA [Concomitant]
     Active Substance: DOXAZOSIN MESYLATE
  3. PROSCAR [Concomitant]
     Active Substance: FINASTERIDE
  4. AMARYL [Concomitant]
     Active Substance: GLIMEPIRIDE
  5. ULORIC [Concomitant]
     Active Substance: FEBUXOSTAT
  6. TORSEMIDE. [Concomitant]
     Active Substance: TORSEMIDE
  7. ZENPEP [Concomitant]
     Active Substance: PANCRELIPASE AMYLASE\PANCRELIPASE LIPASE\PANCRELIPASE PROTEASE
  8. VELTASSA [Suspect]
     Active Substance: PATIROMER
     Indication: HYPERKALAEMIA
     Dosage: 8.4 G, QD
     Route: 048
  9. ASPIRIN                            /00002701/ [Concomitant]
     Active Substance: ASPIRIN
  10. ZOCOR [Concomitant]
     Active Substance: SIMVASTATIN
  11. COREG [Concomitant]
     Active Substance: CARVEDILOL
  12. NEURONTIN [Concomitant]
     Active Substance: GABAPENTIN

REACTIONS (3)
  - Gastric haemorrhage [Unknown]
  - Gastric ulcer [Unknown]
  - Constipation [Not Recovered/Not Resolved]

NARRATIVE: CASE EVENT DATE: 201612
